FAERS Safety Report 23542081 (Version 1)
Quarter: 2024Q1

REPORT INFORMATION
  Report Type: Spontaneous
  Country: PL (occurrence: PL)
  Receive Date: 20240220
  Receipt Date: 20240220
  Transmission Date: 20240409
  Serious: Yes (Hospitalization, Other)
  Sender: FDA-Public Use
  Company Number: PL-NOVOPROD-1177384

PATIENT
  Weight: 3.95 kg

DRUGS (2)
  1. INSULIN HUMAN [Suspect]
     Active Substance: INSULIN HUMAN
     Indication: Type 2 diabetes mellitus
     Dosage: 4-6 UNITS
     Route: 064
  2. INSULIN HUMAN [Suspect]
     Active Substance: INSULIN HUMAN
     Dosage: UNK(REDUCED)
     Route: 064

REACTIONS (2)
  - Urosepsis [Recovered/Resolved]
  - Foetal exposure during pregnancy [Recovered/Resolved]
